FAERS Safety Report 19063661 (Version 1)
Quarter: 2021Q1

REPORT INFORMATION
  Report Type: Spontaneous
  Country: US (occurrence: US)
  Receive Date: 20210326
  Receipt Date: 20210326
  Transmission Date: 20210420
  Serious: No
  Sender: FDA-Public Use
  Company Number: US-ELI_LILLY_AND_COMPANY-US202102013413

PATIENT
  Sex: Female

DRUGS (3)
  1. HUMALOG [Suspect]
     Active Substance: INSULIN LISPRO
     Dosage: UNK, UNKNOWN
     Route: 065
     Dates: start: 20210217
  2. HUMALOG [Suspect]
     Active Substance: INSULIN LISPRO
     Indication: PRODUCT USED FOR UNKNOWN INDICATION
     Dosage: UNK, UNKNOWN
     Route: 065
  3. LANTUS [Concomitant]
     Active Substance: INSULIN GLARGINE
     Indication: PRODUCT USED FOR UNKNOWN INDICATION

REACTIONS (13)
  - Blood glucose increased [Unknown]
  - Neuropathy peripheral [Unknown]
  - Drug hypersensitivity [Unknown]
  - Product storage error [Unknown]
  - Nervousness [Unknown]
  - Body temperature increased [Unknown]
  - Arthropathy [Unknown]
  - Drug ineffective [Unknown]
  - Stress [Unknown]
  - Arthralgia [Unknown]
  - Illness [Unknown]
  - Blood glucose decreased [Unknown]
  - Mobility decreased [Unknown]
